FAERS Safety Report 10081274 (Version 1)
Quarter: 2014Q2

REPORT INFORMATION
  Report Type: Spontaneous
  Country: US (occurrence: US)
  Receive Date: 20140416
  Receipt Date: 20140416
  Transmission Date: 20141212
  Serious: No
  Sender: FDA-Public Use
  Company Number: US-PFIZER INC-2014103850

PATIENT
  Sex: Male

DRUGS (1)
  1. LYRICA [Suspect]
     Indication: PAIN IN EXTREMITY
     Dosage: UNK, 2X/DAY

REACTIONS (4)
  - Somnolence [Unknown]
  - Paraesthesia [Unknown]
  - Therapeutic response changed [Unknown]
  - Pre-existing condition improved [Unknown]
